FAERS Safety Report 5709847-2 (Version None)
Quarter: 2008Q2

REPORT INFORMATION
  Report Type: 
  Country: None (occurrence: None)
  Receive Date: 20080418
  Receipt Date: 20070426
  Transmission Date: 20081010
  Serious: No
  Sender: FDA-Public Use
  Company Number: US-ASTRAZENECA-2007UW04952

PATIENT
  Age: 51 Year
  Sex: Male
  Weight: 127.3 kg

DRUGS (1)
  1. TOPROL-XL [Suspect]
     Indication: HYPERTENSION
     Route: 048
     Dates: start: 20030301, end: 20070307

REACTIONS (3)
  - ARTHROPATHY [None]
  - FATIGUE [None]
  - HEADACHE [None]
